FAERS Safety Report 7109502 (Version 3)
Quarter: 2014Q2

REPORT INFORMATION
  Report Type: Spontaneous
  Country: US (occurrence: US)
  Receive Date: 20090910
  Receipt Date: 20140411
  Transmission Date: 20141212
  Serious: Yes (Hospitalization, Other)
  Sender: FDA-Public Use
  Company Number: US-RANBAXY-2009US-27398

PATIENT
  Age: 30 Year
  Sex: Female

DRUGS (1)
  1. AMOXICILLIN [Suspect]
     Indication: URINARY TRACT INFECTION
     Dosage: UNK, UNK
     Route: 065

REACTIONS (9)
  - Psychotic disorder [Recovered/Resolved]
  - Weight decreased [Recovered/Resolved]
  - Decreased appetite [Recovered/Resolved]
  - Sleep disorder [Recovered/Resolved]
  - Confusional state [Recovered/Resolved]
  - Hallucination, auditory [Recovered/Resolved]
  - Thinking abnormal [Recovered/Resolved]
  - Psychomotor hyperactivity [Recovered/Resolved]
  - Tearfulness [Unknown]
